FAERS Safety Report 21274356 (Version 1)
Quarter: 2022Q3

REPORT INFORMATION
  Report Type: Spontaneous
  Country: US (occurrence: None)
  Receive Date: 20220830
  Receipt Date: 20220830
  Transmission Date: 20221026
  Serious: Yes (Other)
  Sender: FDA-Public Use
  Company Number: None

PATIENT
  Age: 58 Year
  Sex: Male
  Weight: 92.25 kg

DRUGS (2)
  1. XIIDRA [Suspect]
     Active Substance: LIFITEGRAST
     Indication: Dry eye
     Dosage: OTHER QUANTITY : 1 DROP(S);?FREQUENCY : TWICE A DAY;?
     Route: 047
     Dates: start: 20220826, end: 20220826
  2. XIIDRA [Suspect]
     Active Substance: LIFITEGRAST
     Indication: Eye pruritus

REACTIONS (3)
  - Instillation site pain [None]
  - Vision blurred [None]
  - Eye irritation [None]

NARRATIVE: CASE EVENT DATE: 20220826
